FAERS Safety Report 15546254 (Version 1)
Quarter: 2018Q4

REPORT INFORMATION
  Report Type: Spontaneous
  Country: US (occurrence: US)
  Receive Date: 20181023
  Receipt Date: 20181023
  Transmission Date: 20190205
  Serious: No
  Sender: FDA-Public Use
  Company Number: None

PATIENT
  Age: 61 Year
  Sex: Female
  Weight: 87.75 kg

DRUGS (13)
  1. LIOTHYRONINE [Concomitant]
     Active Substance: LIOTHYRONINE
  2. TIZANIDINE. [Concomitant]
     Active Substance: TIZANIDINE
  3. MULTIVITAMIN [Concomitant]
     Active Substance: VITAMINS
  4. METABOLIC [Concomitant]
  5. MAINTENANCE [Concomitant]
  6. TRINTELLIX [Suspect]
     Active Substance: VORTIOXETINE HYDROBROMIDE
     Indication: DEPRESSION
     Dosage: ?          QUANTITY:1 TABLET(S);?
     Route: 048
  7. GABAPENTIN. [Concomitant]
     Active Substance: GABAPENTIN
  8. TRAMADOL. [Concomitant]
     Active Substance: TRAMADOL
  9. TRINTELLIX [Suspect]
     Active Substance: VORTIOXETINE HYDROBROMIDE
     Indication: ANXIETY
     Dosage: ?          QUANTITY:1 TABLET(S);?
     Route: 048
  10. CLONAZEPAM. [Concomitant]
     Active Substance: CLONAZEPAM
  11. METHYLFOLATE [Concomitant]
     Active Substance: LEVOMEFOLATE CALCIUM
  12. VITAMIN D [Concomitant]
     Active Substance: CHOLECALCIFEROL
  13. ALLTRELL [Concomitant]

REACTIONS (5)
  - Chills [None]
  - Dizziness [None]
  - Crying [None]
  - Pruritus [None]
  - Migraine [None]

NARRATIVE: CASE EVENT DATE: 20181021
